FAERS Safety Report 19395259 (Version 3)
Quarter: 2022Q3

REPORT INFORMATION
  Report Type: Spontaneous
  Country: FI (occurrence: FI)
  Receive Date: 20210609
  Receipt Date: 20220713
  Transmission Date: 20221026
  Serious: No
  Sender: FDA-Public Use
  Company Number: FI-GSKCCFEMEA-CASE-01227572_AE-45307

PATIENT

DRUGS (17)
  1. NUCALA [Suspect]
     Active Substance: MEPOLIZUMAB
     Indication: Asthma
     Dosage: 100 MG, Z
     Route: 058
     Dates: start: 20171208
  2. NUCALA [Suspect]
     Active Substance: MEPOLIZUMAB
     Dosage: UNK, Z
     Route: 042
     Dates: start: 201912
  3. AMOXICILLIN [Suspect]
     Active Substance: AMOXICILLIN
     Indication: Antibiotic prophylaxis
     Dosage: UNK
  4. PREDNISOLONE [Suspect]
     Active Substance: PREDNISOLONE
     Indication: Asthma
     Dosage: 40 MG
  5. PFIZER-BIONTECH COVID-19 VACCINE [Suspect]
     Active Substance: TOZINAMERAN
     Indication: COVID-19 prophylaxis
     Dosage: UNK
     Dates: start: 20210415
  6. SPIRONOLACTONE [Concomitant]
     Active Substance: SPIRONOLACTONE
     Indication: Product used for unknown indication
     Dosage: 25 MG, QD
  7. SEREVENT DISKUS [Concomitant]
     Active Substance: SALMETEROL XINAFOATE
     Indication: Product used for unknown indication
     Dosage: UNK, AS NEEDED
  8. VENTOLIN [Concomitant]
     Active Substance: ALBUTEROL SULFATE
     Indication: Product used for unknown indication
     Dosage: UNK, PRN, AS NEEDED
  9. ATORVASTATIN [Concomitant]
     Active Substance: ATORVASTATIN
     Indication: Product used for unknown indication
     Dosage: 10 MG, QD
  10. HYDROCHLOROTHIAZIDE\LOSARTAN POTASSIUM [Concomitant]
     Active Substance: HYDROCHLOROTHIAZIDE\LOSARTAN POTASSIUM
     Indication: Product used for unknown indication
     Dosage: UNK, QD,50/12.5 MG
  11. PANTOPRAZOLE SODIUM [Concomitant]
     Active Substance: PANTOPRAZOLE SODIUM
     Indication: Product used for unknown indication
     Dosage: 20 MG , 1-2X0-1 AS NEEDED
  12. ALVESCO [Concomitant]
     Active Substance: CICLESONIDE
     Indication: Product used for unknown indication
     Dosage: 160 UG ,  1-2X1 IN THE EVENINGS
  13. DYMISTA [Concomitant]
     Active Substance: AZELASTINE HYDROCHLORIDE\FLUTICASONE PROPIONATE
     Indication: Product used for unknown indication
     Dosage: UNK,125+50 MICROGRAM
  14. LACTOSEVEN [Concomitant]
     Indication: Product used for unknown indication
  15. ALFLOREX [Concomitant]
     Indication: Product used for unknown indication
     Dosage: UNK
  16. SACCHAROMYCES CEREVISIAE [Concomitant]
     Active Substance: SACCHAROMYCES CEREVISIAE
     Indication: Product used for unknown indication
  17. BISOPROLOL [Concomitant]
     Active Substance: BISOPROLOL
     Indication: Product used for unknown indication
     Dosage: 2.5 MG, QD

REACTIONS (13)
  - Skin haemorrhage [Recovered/Resolved]
  - Pain [Recovered/Resolved]
  - Generalised oedema [Recovered/Resolved]
  - Dermatitis [Recovering/Resolving]
  - Skin injury [Recovered/Resolved]
  - Skin fissures [Recovering/Resolving]
  - Erythema [Recovering/Resolving]
  - Decubitus ulcer [Recovered/Resolved]
  - Eczema [Unknown]
  - Skin exfoliation [Unknown]
  - Eosinophil count decreased [Unknown]
  - Drug eruption [Recovered/Resolved]
  - Therapeutic response unexpected [Unknown]

NARRATIVE: CASE EVENT DATE: 20170101
